FAERS Safety Report 10394316 (Version 2)
Quarter: 2015Q2

REPORT INFORMATION
  Report Type: Report from Study
  Country: US (occurrence: US)
  Receive Date: 20140819
  Receipt Date: 20150615
  Transmission Date: 20150821
  Serious: Yes (Hospitalization, Other)
  Sender: FDA-Public Use
  Company Number: US-GILEAD-2014-0112129

PATIENT
  Age: 46 Year
  Sex: Female

DRUGS (2)
  1. AMBRISENTAN [Suspect]
     Active Substance: AMBRISENTAN
     Indication: PULMONARY ARTERIAL HYPERTENSION
     Dosage: 5 MG, UNK
     Route: 065
     Dates: start: 20130620
  2. AMBRISENTAN [Suspect]
     Active Substance: AMBRISENTAN
     Indication: UNEVALUABLE EVENT

REACTIONS (2)
  - Pulmonary arterial hypertension [Unknown]
  - Cardiac failure [Unknown]
